FAERS Safety Report 6938411-2 (Version None)
Quarter: 2010Q3

REPORT INFORMATION
  Report Type: 
  Country: None (occurrence: None)
  Receive Date: 20100824
  Receipt Date: 20100810
  Transmission Date: 20110219
  Serious: Yes (Hospitalization, Other)
  Sender: FDA-Public Use
  Company Number: CA-ELI_LILLY_AND_COMPANY-CA201008003059

PATIENT
  Age: 74 Year
  Sex: Female

DRUGS (19)
  1. FORTEO [Suspect]
     Indication: OSTEOPOROSIS
     Dosage: 20 UG, DAILY (1/D)
     Route: 058
     Dates: start: 20100111, end: 20100805
  2. APO-ACETAMINOPHEN [Concomitant]
  3. AMLODIPINE [Concomitant]
  4. FOLIC ACID [Concomitant]
  5. APO-PREDNISONE [Concomitant]
  6. SENNTAB [Concomitant]
  7. COLACE [Concomitant]
  8. FUROSEMIDE [Concomitant]
  9. ISMN [Concomitant]
  10. SIMVASTATIN [Concomitant]
  11. VERAP [Concomitant]
  12. PANTOPRAZOLE [Concomitant]
  13. SINGULAIR [Concomitant]
  14. PLAVIX [Concomitant]
  15. REFRESH TEARS LUBRICANT [Concomitant]
  16. ALBUTEROL SULFATE AUTOHALER [Concomitant]
  17. VIT B12 [Concomitant]
  18. ATIVAN [Concomitant]
  19. LACRI-LUBE [Concomitant]

REACTIONS (5)
  - ASTHMA [None]
  - BRONCHITIS [None]
  - DRUG INEFFECTIVE [None]
  - DYSARTHRIA [None]
  - MUSCLE SPASMS [None]
